FAERS Safety Report 20329782 (Version 2)
Quarter: 2022Q1

REPORT INFORMATION
  Report Type: Spontaneous
  Country: US (occurrence: None)
  Receive Date: 20220112
  Receipt Date: 20220120
  Transmission Date: 20220424
  Serious: Yes (Hospitalization, Other)
  Sender: FDA-Public Use
  Company Number: US-ROCHE-2997400

PATIENT
  Age: 68 Year
  Sex: Female

DRUGS (3)
  1. KADCYLA [Suspect]
     Active Substance: ADO-TRASTUZUMAB EMTANSINE
     Indication: Breast cancer metastatic
     Dosage: NO
     Route: 042
     Dates: start: 20211202, end: 20211202
  2. HERCEPTIN [Suspect]
     Active Substance: TRASTUZUMAB
     Indication: Breast cancer
     Dosage: NO
     Route: 065
     Dates: start: 20110629, end: 201207
  3. BIOTIN [Concomitant]
     Active Substance: BIOTIN
     Indication: Pain
     Dosage: YES
     Dates: start: 2014

REACTIONS (11)
  - Hypersensitivity [Not Recovered/Not Resolved]
  - Chills [Not Recovered/Not Resolved]
  - Decreased appetite [Not Recovered/Not Resolved]
  - Weight decreased [Unknown]
  - Bone cancer metastatic [Unknown]
  - Breast cancer metastatic [Unknown]
  - Peripheral swelling [Unknown]
  - Dyspnoea [Unknown]
  - Neutropenia [Unknown]
  - Therapy interrupted [Unknown]
  - Mastectomy [Unknown]

NARRATIVE: CASE EVENT DATE: 20211001
